FAERS Safety Report 20657068 (Version 1)
Quarter: 2022Q1

REPORT INFORMATION
  Report Type: Spontaneous
  Country: CA (occurrence: CA)
  Receive Date: 20220331
  Receipt Date: 20220331
  Transmission Date: 20220424
  Serious: Yes (Other)
  Sender: FDA-Public Use
  Company Number: CA-JNJFOC-20220354977

PATIENT
  Age: 56 Year
  Sex: Female

DRUGS (10)
  1. UPTRAVI [Suspect]
     Active Substance: SELEXIPAG
     Indication: Pulmonary arterial hypertension
     Route: 048
     Dates: start: 20220303, end: 20220309
  2. OPSUMIT [Suspect]
     Active Substance: MACITENTAN
     Indication: Pulmonary arterial hypertension
     Route: 048
  3. BOSENTAN [Suspect]
     Active Substance: BOSENTAN
     Indication: Pulmonary arterial hypertension
     Route: 048
  4. REVATIO [Suspect]
     Active Substance: SILDENAFIL CITRATE
     Indication: Pulmonary arterial hypertension
     Route: 048
     Dates: start: 20220207
  5. PREVACID [Concomitant]
     Active Substance: LANSOPRAZOLE
  6. ZOPICLONE [Concomitant]
     Active Substance: ZOPICLONE
  7. SYNTHROID [Concomitant]
     Active Substance: LEVOTHYROXINE SODIUM
  8. AMLODIPINE [Concomitant]
     Active Substance: AMLODIPINE BESYLATE
  9. ROSUVASTATIN [Concomitant]
     Active Substance: ROSUVASTATIN
  10. LASIX [Concomitant]
     Active Substance: FUROSEMIDE

REACTIONS (2)
  - Peripheral swelling [Recovering/Resolving]
  - Pain in extremity [Recovering/Resolving]

NARRATIVE: CASE EVENT DATE: 20220303
